FAERS Safety Report 6083160-9 (Version None)
Quarter: 2009Q1

REPORT INFORMATION
  Report Type: 
  Country: None (occurrence: None)
  Receive Date: 20090219
  Receipt Date: 20090209
  Transmission Date: 20090719
  Serious: Yes (Other)
  Sender: FDA-Public Use
  Company Number: PHHY2009AU04879

PATIENT
  Sex: Male

DRUGS (1)
  1. CLOZARIL [Suspect]
     Route: 064

REACTIONS (3)
  - HYPOACUSIS [None]
  - PLATELET COUNT DECREASED [None]
  - WEIGHT DECREASED [None]
